FAERS Safety Report 5393407-X (Version None)
Quarter: 2007Q3

REPORT INFORMATION
  Report Type: 
  Country: None (occurrence: None)
  Receive Date: 20070720
  Receipt Date: 20070720
  Transmission Date: 20080115
  Serious: No
  Sender: FDA-Public Use
  Company Number: None

PATIENT
  Age: 42 Year
  Sex: Female

DRUGS (4)
  1. DULOXETINE [Suspect]
     Indication: MAJOR DEPRESSION
     Dosage: 60 MG DAILY PO
     Route: 048
     Dates: end: 20070504
  2. BACITRACIN [Concomitant]
  3. BUPROPION HCL [Concomitant]
  4. CITALOPRAM HYDROBROMIDE [Concomitant]

REACTIONS (1)
  - URINARY RETENTION [None]
